FAERS Safety Report 6307370-8 (Version None)
Quarter: 2009Q3

REPORT INFORMATION
  Report Type: 
  Country: None (occurrence: None)
  Receive Date: 20090813
  Receipt Date: 20090805
  Transmission Date: 20100115
  Serious: No
  Sender: FDA-Public Use
  Company Number: FI-JNJFOC-20090801435

PATIENT
  Age: 4 Decade
  Sex: Male

DRUGS (5)
  1. DURAGESIC-100 [Suspect]
     Route: 062
  2. DURAGESIC-100 [Suspect]
     Indication: ANALGESIA
     Route: 062
  3. TIZANIDINE HCL [Concomitant]
     Indication: MUSCLE RELAXANT THERAPY
     Route: 065
  4. BURANA [Concomitant]
     Indication: PAIN
     Route: 065
  5. DIAZEPAM [Concomitant]
     Route: 065

REACTIONS (3)
  - DEVICE ADHESION ISSUE [None]
  - DRUG ADMINISTERED AT INAPPROPRIATE SITE [None]
  - HYPERHIDROSIS [None]
